FAERS Safety Report 10202274 (Version 1)
Quarter: 2014Q2

REPORT INFORMATION
  Report Type: Spontaneous
  Country: US (occurrence: US)
  Receive Date: 20140528
  Receipt Date: 20140528
  Transmission Date: 20141212
  Serious: No
  Sender: FDA-Public Use
  Company Number: US-BRISTOL-MYERS SQUIBB COMPANY-20301297

PATIENT
  Sex: Male

DRUGS (2)
  1. METFORMIN HCL [Suspect]
     Indication: BLOOD GLUCOSE
  2. LEVEMIR [Suspect]
     Indication: BLOOD GLUCOSE
     Dosage: 1DF:20 UNITS AND INCREASED TO 22 UNITS AT NIGHT

REACTIONS (1)
  - Drug ineffective [Unknown]
